FAERS Safety Report 10662598 (Version 1)
Quarter: 2014Q4

REPORT INFORMATION
  Report Type: Spontaneous
  Country: US (occurrence: US)
  Receive Date: 20141218
  Receipt Date: 20141218
  Transmission Date: 20150529
  Serious: Yes (Life-Threatening, Hospitalization)
  Sender: FDA-Public Use
  Company Number: US-ASTRAZENECA-2014SE95333

PATIENT
  Age: 0 Day

DRUGS (3)
  1. ALBUTEROL. [Concomitant]
     Active Substance: ALBUTEROL
     Indication: PROPHYLAXIS
  2. PULMICORT FLEXHALER [Suspect]
     Active Substance: BUDESONIDE
     Indication: ASTHMA
     Route: 064
     Dates: start: 201306, end: 201310
  3. FLONASE [Concomitant]
     Active Substance: FLUTICASONE PROPIONATE
     Indication: RHINITIS ALLERGIC

REACTIONS (8)
  - Fallot^s tetralogy [Recovered/Resolved]
  - Low birth weight baby [Unknown]
  - Thalamus haemorrhage [Recovered/Resolved]
  - Retching [Unknown]
  - Tracheo-oesophageal fistula [Not Recovered/Not Resolved]
  - Hypothyroidism [Unknown]
  - Dysphagia [Unknown]
  - Respiratory arrest [Recovered/Resolved]

NARRATIVE: CASE EVENT DATE: 20130930
